FAERS Safety Report 10794431 (Version 1)
Quarter: 2015Q1

REPORT INFORMATION
  Report Type: Spontaneous
  Country: US (occurrence: US)
  Receive Date: 20150213
  Receipt Date: 20150213
  Transmission Date: 20150721
  Serious: Yes (Death, Hospitalization, Other)
  Sender: FDA-Public Use
  Company Number: US-SIGMA-TAU US-2015STPI000079

PATIENT
  Age: 20 Year
  Sex: Female

DRUGS (1)
  1. ONCASPAR [Suspect]
     Active Substance: PEGASPARGASE
     Indication: PRODUCT USED FOR UNKNOWN INDICATION
     Dosage: 4 DF, X1
     Dates: start: 20140221, end: 20140221

REACTIONS (4)
  - Sepsis [Fatal]
  - Shock haemorrhagic [Fatal]
  - Pancreatitis [Not Recovered/Not Resolved]
  - Brain death [Not Recovered/Not Resolved]

NARRATIVE: CASE EVENT DATE: 20140303
